FAERS Safety Report 9580613 (Version 1)
Quarter: 2013Q3

REPORT INFORMATION
  Report Type: Spontaneous
  Country: US (occurrence: None)
  Receive Date: 20130916
  Receipt Date: 20130916
  Transmission Date: 20140515
  Serious: Yes (Other)
  Sender: FDA-Public Use
  Company Number: JPI-P-031060

PATIENT
  Age: 59 Year
  Sex: Female
  Weight: 52.16 kg

DRUGS (4)
  1. XYREM (500 MILLIGRAM/MILLILITERS, SOLUTION) (SODIUM OXYBATE) [Suspect]
     Indication: NARCOLEPSY
     Route: 048
     Dates: start: 20130329, end: 2013
  2. AMPHETAMINE ASPARTATE, AMPHETAMINE SULFATE; DEXTROAMPHETAMINE SACCHARATE; DEXTROAMPHETAMINE SULFATE [Suspect]
     Indication: ATTENTION DEFICIT/HYPERACTIVITY DISORDER
     Dates: end: 2013
  3. AMPHETAMINE ASPARTATE, AMPHETAMINE SULFATE; DEXTROAMPHETAMINE SACCHARATE; DEXTROAMPHETAMINE SULFATE [Suspect]
     Indication: NARCOLEPSY
     Dates: end: 2013
  4. VILAZODONE HYDROCHLORIDE [Concomitant]

REACTIONS (8)
  - Blood pressure increased [None]
  - Bone pain [None]
  - Disturbance in attention [None]
  - Dizziness [None]
  - Paraesthesia [None]
  - Pain in extremity [None]
  - Nightmare [None]
  - Abnormal dreams [None]
